FAERS Safety Report 13693686 (Version 1)
Quarter: 2017Q2

REPORT INFORMATION
  Report Type: Spontaneous
  Country: FR (occurrence: FR)
  Receive Date: 20170627
  Receipt Date: 20170627
  Transmission Date: 20170830
  Serious: Yes (Disabling)
  Sender: FDA-Public Use
  Company Number: FR-BAYER-2017-120535

PATIENT
  Age: 31 Year
  Sex: Female

DRUGS (1)
  1. MIRENA [Suspect]
     Active Substance: LEVONORGESTREL
     Indication: CONTRACEPTION
     Dosage: 20 MCG/24HR, CONT
     Route: 015
     Dates: start: 20130215, end: 20131130

REACTIONS (7)
  - Fatigue [Unknown]
  - Insomnia [Unknown]
  - Depression [Unknown]
  - Weight decreased [Unknown]
  - Basedow^s disease [Unknown]
  - Aggression [Unknown]
  - Irritability [Unknown]

NARRATIVE: CASE EVENT DATE: 201307
